FAERS Safety Report 8925984 (Version 2)
Quarter: 2012Q4

REPORT INFORMATION
  Report Type: Report from Study
  Country: FR (occurrence: FR)
  Receive Date: 20121126
  Receipt Date: 20121210
  Transmission Date: 20130627
  Serious: Yes (Death)
  Sender: FDA-Public Use
  Company Number: FR-ROCHE-1155999

PATIENT
  Age: 77 Year
  Sex: Male
  Weight: 87 kg

DRUGS (5)
  1. RITUXIMAB [Suspect]
     Indication: CHRONIC LYMPHOCYTIC LEUKAEMIA RECURRENT
     Route: 042
     Dates: start: 20120412, end: 20120806
  2. BENDAMUSTINE [Concomitant]
     Route: 042
     Dates: start: 20120412, end: 20120806
  3. ZOPHREN [Concomitant]
     Route: 042
     Dates: start: 20120412, end: 20120807
  4. SOLU-MEDROL [Concomitant]
     Route: 042
     Dates: start: 20120412, end: 20120807
  5. ZARZIO [Concomitant]
     Route: 058
     Dates: start: 20120421, end: 20120822

REACTIONS (1)
  - Progressive multifocal leukoencephalopathy [Fatal]
